FAERS Safety Report 24184050 (Version 1)
Quarter: 2024Q3

REPORT INFORMATION
  Report Type: Spontaneous
  Country: CH (occurrence: CH)
  Receive Date: 20240807
  Receipt Date: 20240807
  Transmission Date: 20241017
  Serious: Yes (Congenital Anomaly, Other)
  Sender: TEVA
  Company Number: CH-TEVA-VS-3227067

PATIENT
  Sex: Male

DRUGS (1)
  1. ISOTRETINOIN [Suspect]
     Active Substance: ISOTRETINOIN
     Indication: Acne
     Route: 064

REACTIONS (7)
  - Dysmorphism [Not Recovered/Not Resolved]
  - Muscle tone disorder [Not Recovered/Not Resolved]
  - Retinal detachment [Not Recovered/Not Resolved]
  - Microcephaly [Not Recovered/Not Resolved]
  - Developmental delay [Not Recovered/Not Resolved]
  - Athetosis [Not Recovered/Not Resolved]
  - Foetal exposure during pregnancy [Unknown]
